FAERS Safety Report 11648795 (Version 4)
Quarter: 2016Q2

REPORT INFORMATION
  Report Type: Other
  Country: US (occurrence: US)
  Receive Date: 20151021
  Receipt Date: 20160421
  Transmission Date: 20160815
  Serious: Yes (Other)
  Sender: FDA-Public Use
  Company Number: US-ACORDA-ACO_110357_2015

PATIENT
  Age: 53 Year
  Sex: Female
  Weight: 93.42 kg

DRUGS (10)
  1. CORTICOSTEROID NOS [Suspect]
     Active Substance: CORTICOSTEROID NOS
     Indication: PRODUCT USED FOR UNKNOWN INDICATION
     Route: 065
  2. GILENYA [Concomitant]
     Active Substance: FINGOLIMOD HYDROCHLORIDE
     Indication: PRODUCT USED FOR UNKNOWN INDICATION
     Route: 065
  3. AMPYRA [Suspect]
     Active Substance: DALFAMPRIDINE
     Indication: MULTIPLE SCLEROSIS
     Dosage: 10 MG, BID
     Route: 048
     Dates: start: 201301
  4. AMPYRA [Suspect]
     Active Substance: DALFAMPRIDINE
     Dosage: UNK
  5. BOTOX [Concomitant]
     Active Substance: ONABOTULINUMTOXINA
     Indication: PRODUCT USED FOR UNKNOWN INDICATION
     Route: 065
  6. OTHER THERAPEUTIC PRODUCTS [Concomitant]
     Active Substance: UNSPECIFIED INGREDIENT
     Indication: PRODUCT USED FOR UNKNOWN INDICATION
  7. HYDROCORTISONE. [Concomitant]
     Active Substance: HYDROCORTISONE
     Indication: ADRENAL INSUFFICIENCY
     Route: 065
  8. DIPHENHYDRAMINE. [Concomitant]
     Active Substance: DIPHENHYDRAMINE
     Indication: PRODUCT USED FOR UNKNOWN INDICATION
     Route: 065
  9. GAMMAGARD [Concomitant]
     Active Substance: HUMAN IMMUNOGLOBULIN G
     Indication: PRODUCT USED FOR UNKNOWN INDICATION
     Dosage: 10% LIQ, 5 GRAM VL
     Route: 065
  10. AMPYRA [Suspect]
     Active Substance: DALFAMPRIDINE
     Dosage: UNK

REACTIONS (20)
  - Burning sensation [Unknown]
  - Oesophageal spasm [Unknown]
  - Vagus nerve disorder [Unknown]
  - Escherichia urinary tract infection [Recovering/Resolving]
  - Back pain [Unknown]
  - Impaired gastric emptying [Unknown]
  - Postural orthostatic tachycardia syndrome [Unknown]
  - Increased tendency to bruise [Unknown]
  - Hypotension [Unknown]
  - Bladder spasm [Unknown]
  - Headache [Recovering/Resolving]
  - Gastrointestinal motility disorder [Recovering/Resolving]
  - Weight increased [Unknown]
  - Diabetes insipidus [Unknown]
  - Dermatitis contact [Unknown]
  - Gait disturbance [Unknown]
  - Oesophageal motility disorder [Unknown]
  - Gastrointestinal pain [Unknown]
  - Blister [Unknown]
  - Urinary tract infection [Not Recovered/Not Resolved]

NARRATIVE: CASE EVENT DATE: 2008
